FAERS Safety Report 8731304 (Version 2)
Quarter: 2013Q1

REPORT INFORMATION
  Report Type: Report from Study
  Country: CA (occurrence: CA)
  Receive Date: 20120820
  Receipt Date: 20130327
  Transmission Date: 20140127
  Serious: Yes (Other)
  Sender: FDA-Public Use
  Company Number: CA-JNJFOC-20120805000

PATIENT
  Sex: Male
  Weight: 109 kg

DRUGS (4)
  1. REMICADE [Suspect]
     Indication: ANKYLOSING SPONDYLITIS
     Route: 042
  2. REMICADE [Suspect]
     Indication: ANKYLOSING SPONDYLITIS
     Route: 042
     Dates: start: 20070129
  3. NAPROXEN [Concomitant]
     Route: 065
  4. PREVACID [Concomitant]
     Route: 065

REACTIONS (6)
  - Therapeutic response decreased [Unknown]
  - Neck pain [Unknown]
  - Tenosynovitis [Unknown]
  - Hepatic steatosis [Unknown]
  - Central obesity [Unknown]
  - Carpal tunnel syndrome [Unknown]
